FAERS Safety Report 7649595-5 (Version None)
Quarter: 2011Q3

REPORT INFORMATION
  Report Type: 
  Country: None (occurrence: None)
  Receive Date: 20110802
  Receipt Date: 20110728
  Transmission Date: 20111222
  Serious: Yes (Death)
  Sender: FDA-Public Use
  Company Number: IL-SANOFI-AVENTIS-2011SA048840

PATIENT
  Age: 62 Year
  Sex: Male
  Weight: 160 kg

DRUGS (4)
  1. OXALIPLATIN [Suspect]
     Route: 065
     Dates: start: 20110621, end: 20110621
  2. DEXAMETHASONE [Concomitant]
     Indication: PREMEDICATION
     Route: 065
  3. OXALIPLATIN [Suspect]
     Route: 065
     Dates: start: 20110712, end: 20110712
  4. ZOFRAN [Concomitant]
     Indication: PREMEDICATION
     Route: 065

REACTIONS (6)
  - OROPHARYNGEAL PAIN [None]
  - OROPHARYNGEAL DISCOMFORT [None]
  - AGITATION [None]
  - DYSPNOEA [None]
  - THROAT IRRITATION [None]
  - CARDIO-RESPIRATORY ARREST [None]
